FAERS Safety Report 7712050-8 (Version None)
Quarter: 2011Q3

REPORT INFORMATION
  Report Type: 
  Country: None (occurrence: None)
  Receive Date: 20110826
  Receipt Date: 20110824
  Transmission Date: 20111222
  Serious: Yes (Congenital Anomaly, Other)
  Sender: FDA-Public Use
  Company Number: CH-PFIZER INC-2011196167

PATIENT
  Sex: Male

DRUGS (1)
  1. XANAX [Suspect]
     Dosage: 0.5 MG, DAILY
     Route: 064

REACTIONS (11)
  - CLEFT PALATE [None]
  - CLINODACTYLY [None]
  - CHROMOSOMAL DELETION [None]
  - MICROGNATHIA [None]
  - WILLIAMS SYNDROME [None]
  - DYSMORPHISM [None]
  - MATERNAL EXPOSURE DURING PREGNANCY [None]
  - APLASIA [None]
  - RETROGNATHIA [None]
  - FINGER HYPOPLASIA [None]
  - FOOT DEFORMITY [None]
